FAERS Safety Report 18050817 (Version 2)
Quarter: 2020Q3

REPORT INFORMATION
  Report Type: Spontaneous
  Country: GB (occurrence: GB)
  Receive Date: 20200721
  Receipt Date: 20200731
  Transmission Date: 20201103
  Serious: Yes (Life-Threatening, Hospitalization, Disabling, Other)
  Sender: FDA-Public Use
  Company Number: GB-009507513-2007GBR007595

PATIENT
  Age: 35 Year
  Sex: Female

DRUGS (2)
  1. NEXPLANON [Suspect]
     Active Substance: ETONOGESTREL
     Indication: CONTRACEPTION
     Dosage: 1 IMPLANT
     Route: 058
     Dates: start: 20171221
  2. SERTRALINE HYDROCHLORIDE. [Concomitant]
     Active Substance: SERTRALINE HYDROCHLORIDE
     Indication: DEPRESSION
     Dosage: 50 MILLIGRAM, QD
     Route: 048
     Dates: start: 20190930

REACTIONS (8)
  - Vaginal haemorrhage [Unknown]
  - Ruptured ectopic pregnancy [Recovered/Resolved]
  - Pelvic inflammatory disease [Unknown]
  - Ectopic pregnancy with contraceptive device [Recovered/Resolved]
  - Malaise [Recovering/Resolving]
  - Hypotension [Recovering/Resolving]
  - Acute abdomen [Recovering/Resolving]
  - Unintended pregnancy [Recovered/Resolved]

NARRATIVE: CASE EVENT DATE: 2020
